FAERS Safety Report 7009523-2 (Version None)
Quarter: 2010Q3

REPORT INFORMATION
  Report Type: 
  Country: None (occurrence: None)
  Receive Date: 20100923
  Receipt Date: 20100914
  Transmission Date: 20110219
  Serious: Yes (Other)
  Sender: FDA-Public Use
  Company Number: PHHY2010US60944

PATIENT
  Sex: Female

DRUGS (2)
  1. EXJADE [Suspect]
     Dosage: 625 MG, QD
     Route: 048
  2. EXJADE [Suspect]
     Route: 048

REACTIONS (3)
  - HALLUCINATIONS, MIXED [None]
  - INSOMNIA [None]
  - PHOBIA [None]
